FAERS Safety Report 20645525 (Version 1)
Quarter: 2022Q1

REPORT INFORMATION
  Report Type: Spontaneous
  Country: CN (occurrence: CN)
  Receive Date: 20220328
  Receipt Date: 20220328
  Transmission Date: 20220423
  Serious: Yes (Hospitalization, Other)
  Sender: FDA-Public Use
  Company Number: CN-009507513-2203CHN006904

PATIENT
  Age: 45 Year
  Sex: Male
  Weight: 80 kg

DRUGS (3)
  1. CILASTATIN SODIUM\IMIPENEM [Suspect]
     Active Substance: CILASTATIN SODIUM\IMIPENEM
     Indication: Urosepsis
     Dosage: 1 GRAM, EVERY 8 HOURS (Q8H); IV DRIP
     Route: 041
     Dates: start: 20220219, end: 20220221
  2. CILASTATIN SODIUM\IMIPENEM [Suspect]
     Active Substance: CILASTATIN SODIUM\IMIPENEM
     Dosage: 2 GRAM, EVERY 8 HOURS (Q8H); IV DRIP
     Dates: start: 20220222, end: 20220224
  3. MEROPENEM [Concomitant]
     Active Substance: MEROPENEM
     Indication: Urinary tract infection
     Dosage: 1 GRAM, EVERY 8 HOURS (Q8H); IV DRIP
     Route: 041
     Dates: start: 20220219, end: 20220222

REACTIONS (7)
  - Nervous system disorder [Not Recovered/Not Resolved]
  - Epilepsy [Unknown]
  - Drug ineffective [Unknown]
  - Restlessness [Unknown]
  - Somnolence [Unknown]
  - Dyskinesia [Unknown]
  - Overdose [Unknown]

NARRATIVE: CASE EVENT DATE: 20220201
